FAERS Safety Report 18417242 (Version 1)
Quarter: 2020Q4

REPORT INFORMATION
  Report Type: Report from Study
  Country: GB (occurrence: GB)
  Receive Date: 20201022
  Receipt Date: 20201022
  Transmission Date: 20210114
  Serious: Yes (Other)
  Sender: FDA-Public Use
  Company Number: NVSC2020GB267547

PATIENT
  Age: 74 Year
  Sex: Male

DRUGS (3)
  1. LUTETIUM (177LU) OXODOTREOTIDE [Suspect]
     Active Substance: LUTETIUM OXODOTREOTIDE LU-177
     Indication: NEUROENDOCRINE TUMOUR
     Dosage: UNK
     Route: 042
     Dates: start: 20200930, end: 20200930
  2. AMINO ACID [Concomitant]
     Active Substance: AMINO ACIDS, SOURCE UNSPECIFIED
     Indication: PRODUCT USED FOR UNKNOWN INDICATION
     Dosage: UNK
     Route: 042
     Dates: start: 20200930, end: 20200930
  3. OCTREOTIDE. [Concomitant]
     Active Substance: OCTREOTIDE
     Indication: PRODUCT USED FOR UNKNOWN INDICATION
     Dosage: UNK
     Route: 030
     Dates: start: 20201001, end: 20201001

REACTIONS (1)
  - Infusion site extravasation [Recovered/Resolved]

NARRATIVE: CASE EVENT DATE: 20200930
